FAERS Safety Report 6494492-4 (Version None)
Quarter: 2009Q4

REPORT INFORMATION
  Report Type: 
  Country: None (occurrence: None)
  Receive Date: 20091214
  Receipt Date: 20090316
  Transmission Date: 20100525
  Serious: No
  Sender: FDA-Public Use
  Company Number: US-BRISTOL-MYERS SQUIBB COMPANY-14518971

PATIENT
  Age: 48 Year
  Sex: Female
  Weight: 84 kg

DRUGS (3)
  1. ABILIFY [Suspect]
     Indication: BIPOLAR DISORDER
     Dosage: 3 WEEKS AGO
  2. LAMICTAL [Concomitant]
  3. LITHOBID [Concomitant]

REACTIONS (4)
  - CLUMSINESS [None]
  - COORDINATION ABNORMAL [None]
  - DIZZINESS [None]
  - HYPERHIDROSIS [None]
